FAERS Safety Report 11853643 (Version 1)
Quarter: 2015Q4

REPORT INFORMATION
  Report Type: Other
  Country: US (occurrence: US)
  Receive Date: 20151219
  Receipt Date: 20151219
  Transmission Date: 20160305
  Serious: Yes (Other)
  Sender: FDA-Public Use
  Company Number: US-HETERO LABS LTD-1045680

PATIENT
  Age: 46 Year
  Sex: Male

DRUGS (3)
  1. CITALOPRAM [Concomitant]
     Active Substance: CITALOPRAM HYDROBROMIDE
     Route: 065
  2. PREGABALIN. [Concomitant]
     Active Substance: PREGABALIN
     Route: 065
  3. LEVOFLOXACIN. [Suspect]
     Active Substance: LEVOFLOXACIN
     Route: 065

REACTIONS (20)
  - Visual impairment [Unknown]
  - Depression [Unknown]
  - Atrophy [Unknown]
  - Gastrointestinal motility disorder [Unknown]
  - Myalgia [Unknown]
  - Pain [Unknown]
  - Tachycardia [Unknown]
  - Arthralgia [Unknown]
  - Tendonitis [Unknown]
  - Cognitive disorder [Unknown]
  - Polyneuropathy [Unknown]
  - Mood swings [Unknown]
  - Small fibre neuropathy [Unknown]
  - Fatigue [Unknown]
  - Neuropathy peripheral [Unknown]
  - Anxiety [Unknown]
  - Bradycardia [Unknown]
  - Asthenia [Unknown]
  - Tendon pain [Unknown]
  - Muscular weakness [Unknown]
